FAERS Safety Report 5868994-5 (Version None)
Quarter: 2008Q3

REPORT INFORMATION
  Report Type: 
  Country: None (occurrence: None)
  Receive Date: 20080903
  Receipt Date: 20080827
  Transmission Date: 20090109
  Serious: Yes (Hospitalization)
  Sender: FDA-Public Use
  Company Number: DE-WYE-H05734608

PATIENT
  Sex: Male
  Weight: 70 kg

DRUGS (9)
  1. ADVAGRAF [Suspect]
     Indication: PROPHYLAXIS AGAINST TRANSPLANT REJECTION
     Route: 065
     Dates: start: 20071124
  2. URSODEOXYCHOLIC ACID [Concomitant]
     Dosage: 400 MG/FREQUENCY UNSPECIFIED
     Route: 065
  3. SIOFOR [Concomitant]
     Dosage: 500 MG/FREQUENCY UNSPECIFIED
     Route: 065
  4. ASS-RATIOPHARM [Concomitant]
     Dosage: 100 MG/FREQUENCY NOT PROVIDED
     Route: 065
  5. ALNA [Concomitant]
     Dosage: 0.4 MG/FREQUENCY UNSPECIFIED
     Route: 065
  6. EPIVIR [Concomitant]
     Dosage: 150 MG/FREQUENCY UNSPECIFIED
     Route: 065
  7. AMLODIPINE [Concomitant]
     Dosage: 5 MG/FREQUENCY UNSPECIFIED
     Route: 065
  8. PANTOZOL [Concomitant]
     Dosage: 40 MG/FREQUENCY UNSPECIFIED
     Route: 065
  9. IDEOS [Concomitant]
     Dosage: NOT PROVIDED
     Route: 065

REACTIONS (1)
  - URINARY TRACT INFECTION [None]
